FAERS Safety Report 7743713-6 (Version None)
Quarter: 2011Q3

REPORT INFORMATION
  Report Type: 
  Country: None (occurrence: None)
  Receive Date: 20110912
  Receipt Date: 20110902
  Transmission Date: 20111222
  Serious: Yes (Death, Hospitalization)
  Sender: FDA-Public Use
  Company Number: US-MPIJNJ-2011-03403

PATIENT
  Sex: Female

DRUGS (1)
  1. VELCADE [Suspect]
     Indication: MULTIPLE MYELOMA
     Dosage: 2.2 MG/M2, UNK
     Route: 042
     Dates: start: 20100914, end: 20110707

REACTIONS (3)
  - PLEURAL EFFUSION [None]
  - ATELECTASIS [None]
  - LUNG DISORDER [None]
